FAERS Safety Report 12400266 (Version 1)
Quarter: 2016Q2

REPORT INFORMATION
  Report Type: Spontaneous
  Country: US (occurrence: None)
  Receive Date: 20160524
  Receipt Date: 20160524
  Transmission Date: 20160815
  Serious: No
  Sender: FDA-Public Use
  Company Number: None

PATIENT
  Sex: Male

DRUGS (2)
  1. METFORMIN [Suspect]
     Active Substance: METFORMIN HYDROCHLORIDE
  2. TOUJEO [Suspect]
     Active Substance: INSULIN GLARGINE

REACTIONS (9)
  - Apparent death [None]
  - Dementia [None]
  - Neuropathy peripheral [None]
  - Post-traumatic stress disorder [None]
  - Stress [None]
  - Cardiac failure congestive [None]
  - Blood glucose increased [None]
  - Craniocerebral injury [None]
  - Anger [None]
